FAERS Safety Report 20435970 (Version 4)
Quarter: 2025Q2

REPORT INFORMATION
  Report Type: Report from Study
  Country: ES (occurrence: ES)
  Receive Date: 20220207
  Receipt Date: 20250602
  Transmission Date: 20250716
  Serious: Yes (Hospitalization, Other)
  Sender: AUROBINDO
  Company Number: ES-AUROBINDO-AUR-APL-2022-003118

PATIENT
  Age: 10 Year
  Sex: Female

DRUGS (3)
  1. IBUPROFEN [Suspect]
     Active Substance: IBUPROFEN
     Indication: Product used for unknown indication
     Dosage: 300 MILLIGRAM, TWO TIMES A DAY(TWO DOSES)
     Route: 065
  2. ACETAMINOPHEN [Suspect]
     Active Substance: ACETAMINOPHEN
     Indication: Product used for unknown indication
     Route: 065
  3. METAMIZOL [Suspect]
     Active Substance: METAMIZOLE SODIUM
     Indication: Product used for unknown indication
     Route: 065

REACTIONS (7)
  - Stevens-Johnson syndrome [Recovering/Resolving]
  - Erythema multiforme [Unknown]
  - Pyrexia [Recovering/Resolving]
  - Odynophagia [Recovering/Resolving]
  - Rash vesicular [Recovering/Resolving]
  - Oral disorder [Recovering/Resolving]
  - Genital lesion [Recovering/Resolving]
